FAERS Safety Report 4524565-4 (Version None)
Quarter: 2004Q4

REPORT INFORMATION
  Report Type: 
  Country: None (occurrence: None)
  Receive Date: 20041117
  Receipt Date: 20040614
  Transmission Date: 20050328
  Serious: Yes (Hospitalization)
  Sender: FDA-Public Use
  Company Number: US-JNJFOC-20040401064

PATIENT
  Age: 69 Year
  Sex: Female
  Weight: 61.2356 kg

DRUGS (2)
  1. LEVAQUIN [Suspect]
     Indication: CHRONIC OBSTRUCTIVE AIRWAYS DISEASE
     Dosage: 500 MG, 1 IN 1 DAY
     Dates: start: 20040201, end: 20040201
  2. LEVAQUIN [Suspect]
     Indication: CHRONIC OBSTRUCTIVE AIRWAYS DISEASE
     Dosage: 500 MG, 1 IN 1 DAY
     Dates: start: 20040329

REACTIONS (3)
  - DEPRESSION [None]
  - PARANOIA [None]
  - SUICIDE ATTEMPT [None]
